FAERS Safety Report 17104832 (Version 1)
Quarter: 2019Q4

REPORT INFORMATION
  Report Type: Spontaneous
  Country: US (occurrence: US)
  Receive Date: 20191203
  Receipt Date: 20191203
  Transmission Date: 20200122
  Serious: No
  Sender: FDA-Public Use
  Company Number: US-VIFOR (INTERNATIONAL) INC.-VIT-2019-13209

PATIENT
  Age: 72 Year
  Sex: Female

DRUGS (1)
  1. VELPHORO [Suspect]
     Active Substance: FERRIC OXYHYDROXIDE
     Indication: END STAGE RENAL DISEASE
     Route: 048
     Dates: start: 201812, end: 2019

REACTIONS (1)
  - Serum ferritin increased [Recovering/Resolving]

NARRATIVE: CASE EVENT DATE: 201908
